FAERS Safety Report 12645868 (Version 1)
Quarter: 2016Q3

REPORT INFORMATION
  Report Type: Spontaneous
  Country: US (occurrence: US)
  Receive Date: 20160811
  Receipt Date: 20160811
  Transmission Date: 20161109
  Serious: No
  Sender: FDA-Public Use
  Company Number: US-ENDO PHARMACEUTICALS INC.-2016-002629

PATIENT
  Age: 78 Year
  Sex: Male
  Weight: 95.34 kg

DRUGS (1)
  1. PREDNISONE TABLETS [Suspect]
     Active Substance: PREDNISONE
     Indication: PRODUCT USED FOR UNKNOWN INDICATION
     Route: 048
     Dates: start: 20160404

REACTIONS (2)
  - Laceration [Recovered/Resolved]
  - Product package associated injury [Recovered/Resolved]

NARRATIVE: CASE EVENT DATE: 20160404
